FAERS Safety Report 18399476 (Version 7)
Quarter: 2020Q4

REPORT INFORMATION
  Report Type: Report from Study
  Country: PL (occurrence: PL)
  Receive Date: 20201019
  Receipt Date: 20201215
  Transmission Date: 20210114
  Serious: Yes (Life-Threatening, Hospitalization)
  Sender: FDA-Public Use
  Company Number: PL-ROCHE-2683952

PATIENT
  Age: 41 Year
  Sex: Female
  Weight: 48 kg

DRUGS (21)
  1. PARACETAMOL [Concomitant]
     Active Substance: ACETAMINOPHEN
     Dosage: PAIN RELIEF AFTER OPERATION.
     Route: 042
     Dates: start: 20201006, end: 20201016
  2. MTIG 7192A [Suspect]
     Active Substance: TIRAGOLUMAB
     Indication: CERVIX CARCINOMA
     Dosage: DATE OF MOST RECENT DOSE OF STUDY DRUG PRIOR TO AE/SAE WAS 600 MG ON 18/SEP/2020
     Route: 042
     Dates: start: 20200828
  3. TIGECYCLINE. [Concomitant]
     Active Substance: TIGECYCLINE
     Indication: URINARY TRACT INFECTION
     Route: 041
     Dates: start: 20201020, end: 20201101
  4. EUTHYROX [Concomitant]
     Active Substance: LEVOTHYROXINE SODIUM
     Indication: AUTOIMMUNE THYROIDITIS
     Route: 048
  5. PARACETAMOL [Concomitant]
     Active Substance: ACETAMINOPHEN
     Indication: ANALGESIC THERAPY
     Route: 042
     Dates: start: 20200922
  6. MEROPENEM. [Concomitant]
     Active Substance: MEROPENEM
     Indication: URINARY TRACT INFECTION
     Route: 042
     Dates: start: 20200911, end: 20200917
  7. BIOFUROKSYM [Concomitant]
     Active Substance: CEFUROXIME SODIUM
     Dosage: ANTIBIOTIC THERAPY AFTER OPERATION.
     Route: 042
     Dates: start: 20201006, end: 20201016
  8. METRONIDAZOL [Concomitant]
     Active Substance: METRONIDAZOLE
     Dosage: SEPSIS WITH E. FAECIUM VRE
     Route: 042
     Dates: start: 20201119
  9. IMIPENEM [Concomitant]
     Active Substance: IMIPENEM
     Indication: SEPSIS
     Dosage: SEPSIS WITH E. FAECIUM VRE
     Route: 042
     Dates: start: 20201119
  10. ATEZOLIZUMAB. [Suspect]
     Active Substance: ATEZOLIZUMAB
     Indication: CERVIX CARCINOMA
     Dosage: DATE OF MOST RECENT DOSE OF ATEZOLIZUMAB STUDY DRUG PRIOR TO AE/SAE WAS 1200 MG ON 18/SEP/2020
     Route: 042
     Dates: start: 20200828
  11. MIRTOR [Concomitant]
     Indication: ADJUSTMENT DISORDER
     Route: 048
     Dates: start: 20200928
  12. LINEZOLID. [Concomitant]
     Active Substance: LINEZOLID
     Indication: UROSEPSIS
     Dosage: UROSEPSIS WITH E. FAECIUM VRE.
     Route: 042
     Dates: start: 20201117
  13. TAROMENTIN [Concomitant]
     Indication: URINARY TRACT INFECTION
     Route: 042
     Dates: start: 20100925, end: 20201001
  14. SYSTEN [Concomitant]
     Active Substance: ESTRADIOL
     Indication: HORMONE REPLACEMENT THERAPY
     Route: 062
     Dates: start: 20170915
  15. OXYCODONE [Concomitant]
     Active Substance: OXYCODONE
     Indication: ANALGESIC THERAPY
     Route: 048
     Dates: start: 20200526
  16. TARGIN [Concomitant]
     Active Substance: NALOXONE HYDROCHLORIDE\OXYCODONE HYDROCHLORIDE
     Indication: ANALGESIC THERAPY
     Route: 048
     Dates: start: 20200813
  17. METAMIZOL [Concomitant]
     Active Substance: METAMIZOLE SODIUM
     Indication: ANALGESIC THERAPY
     Route: 042
     Dates: start: 20200922
  18. FLUCONAZOLE. [Concomitant]
     Active Substance: FLUCONAZOLE
     Indication: PROPHYLAXIS
     Dosage: FOR PROPHYLAXIS OF FUNGAL COINFECTION DURING ANTIBIOTICOTHERAPHY
     Dates: start: 20201022, end: 20201101
  19. METRONIDAZOL [Concomitant]
     Active Substance: METRONIDAZOLE
     Indication: SEPSIS
     Dosage: ANTIBIOTIC THERAPY AFTER OPERATION.
     Route: 042
     Dates: start: 20201006, end: 20201016
  20. CLEXANE [Concomitant]
     Active Substance: ENOXAPARIN SODIUM
     Indication: PROPHYLAXIS
     Route: 058
     Dates: start: 20200818
  21. ELICEA [Concomitant]
     Active Substance: ESCITALOPRAM OXALATE
     Indication: ADJUSTMENT DISORDER
     Route: 048
     Dates: start: 20201008

REACTIONS (3)
  - Anaemia [Recovering/Resolving]
  - Subileus [Recovering/Resolving]
  - Hepatic enzyme increased [Recovered/Resolved]

NARRATIVE: CASE EVENT DATE: 20200922
